FAERS Safety Report 4985429-5 (Version None)
Quarter: 2006Q1

REPORT INFORMATION
  Report Type: 
  Country: None (occurrence: None)
  Receive Date: 20060309
  Receipt Date: 20050705
  Transmission Date: 20060701
  Serious: Yes (Other)
  Sender: FDA-Public Use
  Company Number: 409781

PATIENT
  Sex: 0

DRUGS (2)
  1. ROACCUTANE (ISOTRETINOIN) 25 MG [Suspect]
     Indication: ACNE
     Dosage: ORAL
     Route: 048
     Dates: start: 20041015, end: 20050415
  2. BIRTH CONTROL PILL (ORAL CONTRACEPTIVE NOS) [Concomitant]

REACTIONS (1)
  - ABORTION INDUCED [None]
